FAERS Safety Report 21793041 (Version 1)
Quarter: 2022Q4

REPORT INFORMATION
  Report Type: Spontaneous
  Country: US (occurrence: US)
  Receive Date: 20221229
  Receipt Date: 20221229
  Transmission Date: 20230112
  Serious: No
  Sender: FDA-Public Use
  Company Number: US-SA-SAC20221228000847

PATIENT
  Sex: Male

DRUGS (5)
  1. DUPIXENT [Suspect]
     Active Substance: DUPILUMAB
     Indication: Dermatitis atopic
     Dosage: 300 MG, QOW
     Route: 058
     Dates: start: 202211
  2. ATORVASTATIN [Concomitant]
     Active Substance: ATORVASTATIN
  3. CARBIDOPA [Concomitant]
     Active Substance: CARBIDOPA
  4. FINASTERIDE [Concomitant]
     Active Substance: FINASTERIDE
  5. CIPROFLOXACIN [Concomitant]
     Active Substance: CIPROFLOXACIN

REACTIONS (1)
  - Drug ineffective [Unknown]
